FAERS Safety Report 12680409 (Version 1)
Quarter: 2016Q3

REPORT INFORMATION
  Report Type: Spontaneous
  Country: US (occurrence: None)
  Receive Date: 20160823
  Receipt Date: 20160823
  Transmission Date: 20161109
  Serious: Yes (Hospitalization)
  Sender: FDA-Public Use
  Company Number: None

PATIENT
  Age: 72 Year
  Sex: Male
  Weight: 88.7 kg

DRUGS (1)
  1. DICLOFENAC [Suspect]
     Active Substance: DICLOFENAC
     Indication: PAIN
     Route: 048
     Dates: start: 20160524, end: 20160613

REACTIONS (10)
  - Dyspepsia [None]
  - Gastritis erosive [None]
  - Gastric haemorrhage [None]
  - Hypotension [None]
  - Asthenia [None]
  - Confusional state [None]
  - Fall [None]
  - Inappropriate schedule of drug administration [None]
  - Incorrect dose administered [None]
  - Faeces discoloured [None]

NARRATIVE: CASE EVENT DATE: 20160610
